FAERS Safety Report 24676125 (Version 1)
Quarter: 2024Q4

REPORT INFORMATION
  Report Type: Spontaneous
  Country: US (occurrence: US)
  Receive Date: 20241128
  Receipt Date: 20241128
  Transmission Date: 20250115
  Serious: No
  Sender: SANOFI AVENTIS
  Company Number: US-SANOFI-02307523

PATIENT
  Sex: Male

DRUGS (2)
  1. LANTUS [Suspect]
     Active Substance: INSULIN GLARGINE
     Indication: Type 2 diabetes mellitus
     Dosage: 15 U, QD
     Dates: start: 20241029
  2. LANTUS [Suspect]
     Active Substance: INSULIN GLARGINE
     Dosage: 20U,QD

REACTIONS (2)
  - Blood glucose increased [Unknown]
  - Drug ineffective [Unknown]
